FAERS Safety Report 19387038 (Version 1)
Quarter: 2021Q2

REPORT INFORMATION
  Report Type: Spontaneous
  Country: US (occurrence: US)
  Receive Date: 20210607
  Receipt Date: 20210607
  Transmission Date: 20210717
  Serious: No
  Sender: FDA-Public Use
  Company Number: US-INCYTE CORPORATION-2021IN004795

PATIENT

DRUGS (1)
  1. JAKAFI [Suspect]
     Active Substance: RUXOLITINIB
     Indication: THROMBOCYTOSIS
     Dosage: 10 MILLIGRAM, BID
     Route: 048

REACTIONS (4)
  - Product dose omission in error [Unknown]
  - Fatigue [Unknown]
  - Anaemia [Unknown]
  - Off label use [Unknown]
